FAERS Safety Report 7862563-3 (Version None)
Quarter: 2011Q4

REPORT INFORMATION
  Report Type: 
  Country: None (occurrence: None)
  Receive Date: 20111027
  Receipt Date: 20101109
  Transmission Date: 20120403
  Serious: No
  Sender: FDA-Public Use
  Company Number: US-AMGEN-USASP2010004295

PATIENT
  Age: 61 Year
  Sex: Female

DRUGS (9)
  1. ACID REDUCER [Concomitant]
     Dosage: 10 MG, UNK
     Route: 048
  2. MULTIVITAMIN                       /00097801/ [Concomitant]
  3. FOSAMAX [Concomitant]
     Dosage: 10 MG, UNK
     Route: 048
  4. AMLODIPINE [Concomitant]
     Dosage: 2.5 MG, UNK
     Route: 048
  5. TRAZODONE HYDROCHLORIDE [Concomitant]
     Dosage: 50 MG, UNK
     Route: 048
  6. LYRICA [Concomitant]
     Dosage: 100 MG, UNK
     Route: 048
  7. DIOVAN [Concomitant]
     Dosage: 160 MG, UNK
     Route: 048
  8. CALCIUM CARBONATE [Concomitant]
     Route: 048
  9. ENBREL [Suspect]
     Indication: PRODUCT USED FOR UNKNOWN INDICATION
     Dosage: 50 MG, QWK

REACTIONS (1)
  - SINUSITIS [None]
